FAERS Safety Report 8889392 (Version 1)
Quarter: 2012Q4

REPORT INFORMATION
  Report Type: Spontaneous
  Country: US (occurrence: None)
  Receive Date: 20121102
  Receipt Date: 20121102
  Transmission Date: 20130627
  Serious: Yes (Death)
  Sender: FDA-Public Use
  Company Number: None

PATIENT
  Age: 67 Year
  Sex: Male
  Weight: 75.3 kg

DRUGS (1)
  1. FUROSEMIDE [Suspect]
     Route: 008

REACTIONS (7)
  - Cardiovascular disorder [None]
  - Decreased appetite [None]
  - Pyrexia [None]
  - Hyperhidrosis [None]
  - Neck pain [None]
  - Headache [None]
  - Back pain [None]
